FAERS Safety Report 19491119 (Version 1)
Quarter: 2021Q3

REPORT INFORMATION
  Report Type: Spontaneous
  Country: DE (occurrence: DE)
  Receive Date: 20210705
  Receipt Date: 20210705
  Transmission Date: 20211014
  Serious: Yes (Hospitalization)
  Sender: FDA-Public Use
  Company Number: DE-TEVA-2021-DE-1929013

PATIENT
  Age: 63 Year
  Sex: Male

DRUGS (9)
  1. BISOPROLOL [Suspect]
     Active Substance: BISOPROLOL
     Dosage: 2.5 MILLIGRAM DAILY; 1?0?1?0
     Route: 048
  2. FERRO?SANOL DUODENAL [Concomitant]
     Active Substance: FERROUS GLYCINE SULFATE
     Dosage: 1 DOSAGE FORMS DAILY; 1?0?0?0
     Route: 048
  3. ENALAPRIL [Concomitant]
     Active Substance: ENALAPRIL
     Dosage: 20 MILLIGRAM DAILY; 1?0?0?0
     Route: 048
  4. SITAGLIPTIN [Concomitant]
     Active Substance: SITAGLIPTIN
     Dosage: 100 MILLIGRAM DAILY; 1?0?1?0
     Route: 048
  5. METFORMIN [Concomitant]
     Active Substance: METFORMIN HYDROCHLORIDE
     Dosage: 2000 MILLIGRAM DAILY; 1?0?0?1
     Route: 048
  6. ATORVASTATIN [Concomitant]
     Active Substance: ATORVASTATIN
     Dosage: 20 MILLIGRAM DAILY; 0?0?1?0
     Route: 048
  7. TORASEMID [Concomitant]
     Active Substance: TORSEMIDE
     Dosage: 5 MILLIGRAM DAILY; 1?0?0?0
     Route: 048
  8. ALLOPURINOL. [Concomitant]
     Active Substance: ALLOPURINOL
     Dosage: 100 MILLIGRAM DAILY; 0?1?0?0
     Route: 048
  9. CLOPIDOGREL [Concomitant]
     Active Substance: CLOPIDOGREL BISULFATE
     Dosage: 75 MILLIGRAM DAILY; 1?0?0?0
     Route: 048

REACTIONS (4)
  - Gangrene [Unknown]
  - Condition aggravated [Unknown]
  - Cellulitis [Unknown]
  - Necrosis [Unknown]
